FAERS Safety Report 23221107 (Version 1)
Quarter: 2023Q4

REPORT INFORMATION
  Report Type: Report from Study
  Country: US (occurrence: US)
  Receive Date: 20231123
  Receipt Date: 20231123
  Transmission Date: 20240110
  Serious: No
  Sender: FDA-Public Use
  Company Number: US-drreddys-SPO/USA/23/0181941

PATIENT
  Age: 46 Year
  Sex: Female
  Weight: 52.846 kg

DRUGS (1)
  1. SAPROPTERIN DIHYDROCHLORIDE [Suspect]
     Active Substance: SAPROPTERIN DIHYDROCHLORIDE
     Indication: Phenylketonuria
     Dosage: ONCE DAILY WITH MEAL AS DIRECTED.
     Route: 048

REACTIONS (2)
  - Gastroenteritis viral [Unknown]
  - Product administration interrupted [Unknown]
